FAERS Safety Report 19510679 (Version 1)
Quarter: 2021Q3

REPORT INFORMATION
  Report Type: Spontaneous
  Country: AT (occurrence: AT)
  Receive Date: 20210709
  Receipt Date: 20210709
  Transmission Date: 20211014
  Serious: Yes (Hospitalization, Other)
  Sender: FDA-Public Use
  Company Number: AT-ORGANON-O2107AUT000276

PATIENT
  Age: 72 Year
  Sex: Female

DRUGS (23)
  1. SORTIS [Interacting]
     Active Substance: ATORVASTATIN
     Indication: HEART TRANSPLANT
     Dosage: 80 MILLIGRAM, QD; (80 MG, 1X/DAY)
     Route: 048
     Dates: start: 201601, end: 20210525
  2. ELIQUIS [Interacting]
     Active Substance: APIXABAN
     Indication: ATRIAL FIBRILLATION
  3. UROSIN [ALLOPURINOL] [Concomitant]
     Dosage: 100 MG
     Route: 048
     Dates: start: 202105
  4. CONCOR [Concomitant]
     Active Substance: BISOPROLOL FUMARATE
     Indication: ATRIAL FIBRILLATION
     Dosage: UNK
     Route: 065
     Dates: start: 201202
  5. EZETROL [Interacting]
     Active Substance: EZETIMIBE
     Indication: HEART TRANSPLANT
     Dosage: 80 MILLIGRAM
     Route: 048
     Dates: start: 201101, end: 20210601
  6. TOREM [TORASEMIDE] [Concomitant]
     Active Substance: TORSEMIDE
     Indication: EJECTION FRACTION ABNORMAL
     Dosage: UNK
     Route: 065
     Dates: start: 201101
  7. TOREM [TORASEMIDE] [Concomitant]
     Active Substance: TORSEMIDE
     Dosage: 10 MG
     Route: 048
     Dates: start: 201101
  8. CELLCEPT [Concomitant]
     Active Substance: MYCOPHENOLATE MOFETIL\MYCOPHENOLATE MOFETIL HYDROCHLORIDE
     Indication: HEART TRANSPLANT
     Dosage: UNK
     Route: 065
     Dates: start: 1994
  9. RAMIPRIL. [Concomitant]
     Active Substance: RAMIPRIL
     Dosage: 2.5 MG
     Route: 048
     Dates: start: 202011
  10. SPASMOLYT [Concomitant]
     Active Substance: TROSPIUM CHLORIDE
     Dosage: 60 MG
     Route: 048
     Dates: start: 20210610
  11. PANTOLOC [Concomitant]
     Active Substance: PANTOPRAZOLE SODIUM
     Indication: PRODUCT USED FOR UNKNOWN INDICATION
     Dosage: UNK
     Route: 065
     Dates: start: 202009
  12. UROSIN [ALLOPURINOL] [Concomitant]
     Indication: HYPERURICAEMIA
     Dosage: UNK
     Route: 065
     Dates: start: 202105
  13. CONCOR [Concomitant]
     Active Substance: BISOPROLOL FUMARATE
     Dosage: 3.75 MG
     Route: 048
     Dates: start: 201202
  14. EZETROL [Suspect]
     Active Substance: EZETIMIBE
     Indication: MYOCARDIAL INFARCTION
     Dosage: 10 MILLIGRAM, QD; (10 MG, 1X/DAY)
     Route: 048
     Dates: start: 201101, end: 20210601
  15. SORTIS [Interacting]
     Active Substance: ATORVASTATIN
     Indication: MYOCARDIAL INFARCTION
  16. CELLCEPT [Concomitant]
     Active Substance: MYCOPHENOLATE MOFETIL\MYCOPHENOLATE MOFETIL HYDROCHLORIDE
     Dosage: DOSE: 2000 MILLIGRAM; (2000 MG)
     Route: 048
     Dates: start: 1994
  17. PRALUENT [Concomitant]
     Active Substance: ALIROCUMAB
     Indication: HYPERCHOLESTEROLAEMIA
     Dosage: UNK
     Route: 065
     Dates: start: 20210601
  18. RAMIPRIL. [Concomitant]
     Active Substance: RAMIPRIL
     Indication: HYPERTENSION
     Dosage: UNK
     Route: 065
     Dates: start: 202011
  19. PANTOLOC [Concomitant]
     Active Substance: PANTOPRAZOLE SODIUM
     Dosage: 40 MG
     Route: 048
     Dates: start: 202009
  20. SANDIMMUN [Interacting]
     Active Substance: CYCLOSPORINE
     Indication: HEART TRANSPLANT
     Dosage: 50 MILLIGRAM, BID; (50 MG, 2X/DAY)
     Route: 048
  21. ELIQUIS [Interacting]
     Active Substance: APIXABAN
     Indication: CEREBROVASCULAR ACCIDENT PROPHYLAXIS
     Dosage: 5 MILLIGRAM, BID; (5 MG, 2X/DAY)
     Route: 048
     Dates: start: 20210505
  22. PRALUENT [Concomitant]
     Active Substance: ALIROCUMAB
     Dosage: EVERY 14 DAYS 150 MG
     Route: 058
     Dates: start: 20210601
  23. SPASMOLYT [Concomitant]
     Active Substance: TROSPIUM CHLORIDE
     Indication: MICTURITION DISORDER
     Dosage: UNK
     Route: 065
     Dates: start: 20210610

REACTIONS (3)
  - Paraparesis [Recovered/Resolved]
  - Rhabdomyolysis [Recovered/Resolved]
  - Drug interaction [Unknown]

NARRATIVE: CASE EVENT DATE: 20210522
